FAERS Safety Report 12670848 (Version 1)
Quarter: 2016Q3

REPORT INFORMATION
  Report Type: Spontaneous
  Country: US (occurrence: US)
  Receive Date: 20160822
  Receipt Date: 20160822
  Transmission Date: 20161109
  Serious: No
  Sender: FDA-Public Use
  Company Number: US-JAZZ-2016-US-006246

PATIENT
  Sex: Female

DRUGS (38)
  1. XYREM [Suspect]
     Active Substance: SODIUM OXYBATE
     Indication: NARCOLEPSY
     Dosage: 2.25 G, BID
     Route: 048
     Dates: start: 201205, end: 2012
  2. ADDERALL [Concomitant]
     Active Substance: AMPHETAMINE ASPARTATE\AMPHETAMINE SULFATE\DEXTROAMPHETAMINE SACCHARATE\DEXTROAMPHETAMINE SULFATE
  3. FLONASE [Concomitant]
     Active Substance: FLUTICASONE PROPIONATE
  4. AMPHETAMINE SALTS [Concomitant]
     Active Substance: AMPHETAMINE ASPARTATE\AMPHETAMINE SULFATE\DEXTROAMPHETAMINE SACCHARATE\DEXTROAMPHETAMINE SULFATE
  5. DEXTROAMPHETAMINE. [Concomitant]
     Active Substance: DEXTROAMPHETAMINE
  6. FIORICET [Concomitant]
     Active Substance: ACETAMINOPHEN\BUTALBITAL\CAFFEINE
  7. XYREM [Suspect]
     Active Substance: SODIUM OXYBATE
     Dosage: 2.25 G, BID
     Route: 048
     Dates: start: 201403, end: 201405
  8. VITAMIN B COMPLEX [Concomitant]
     Active Substance: CYANOCOBALAMIN\DEXPANTHENOL\NIACINAMIDE\PYRIDOXINE HYDROCHLORIDE\RIBOFLAVIN 5^-PHOSPHATE SODIUM\THIAMINE HYDROCHLORIDE\VITAMIN B COMPLEX
  9. CALCIUM MAGNESIUM ZINC [Concomitant]
     Active Substance: CALCIUM\MAGNESIUM\ZINC
  10. VALACYCLOVIR [Concomitant]
     Active Substance: VALACYCLOVIR HYDROCHLORIDE
  11. HYDROCODONE [Concomitant]
     Active Substance: HYDROCODONE
  12. SKELAXIN [Concomitant]
     Active Substance: METAXALONE
  13. LIPITOR [Concomitant]
     Active Substance: ATORVASTATIN CALCIUM
  14. XYREM [Suspect]
     Active Substance: SODIUM OXYBATE
     Dosage: DOSE ADJUSTMENT
     Route: 048
  15. IBUPROFEN. [Concomitant]
     Active Substance: IBUPROFEN
  16. MELATONIN [Concomitant]
     Active Substance: MELATONIN
  17. LUNESTA [Concomitant]
     Active Substance: ESZOPICLONE
  18. XYREM [Suspect]
     Active Substance: SODIUM OXYBATE
     Dosage: 3.75 G, BID
     Route: 048
     Dates: start: 201302, end: 2013
  19. ADVAIR HFA [Concomitant]
     Active Substance: FLUTICASONE PROPIONATE\SALMETEROL XINAFOATE
  20. LECITHIN [Concomitant]
     Active Substance: LECITHIN
  21. LEVOTHYROXINE. [Concomitant]
     Active Substance: LEVOTHYROXINE
  22. PRENATAL [Concomitant]
     Active Substance: VITAMINS
  23. VITAMIN D [Concomitant]
     Active Substance: CHOLECALCIFEROL
  24. JANTOVEN [Concomitant]
     Active Substance: WARFARIN SODIUM
  25. NITROGLYCERIN. [Concomitant]
     Active Substance: NITROGLYCERIN
  26. XYREM [Suspect]
     Active Substance: SODIUM OXYBATE
     Dosage: 4.5 G, BID
     Route: 048
     Dates: start: 201503, end: 2015
  27. FISH OIL OMEGA 3 [Concomitant]
  28. L-LYSINE [Concomitant]
     Active Substance: LYSINE
  29. PROAIR HFA [Concomitant]
     Active Substance: ALBUTEROL SULFATE
  30. VALERIAN ROOT [Concomitant]
     Active Substance: VALERIAN
  31. CLONAZEPAM. [Concomitant]
     Active Substance: CLONAZEPAM
  32. ZONISAMIDE. [Concomitant]
     Active Substance: ZONISAMIDE
  33. XYREM [Suspect]
     Active Substance: SODIUM OXYBATE
     Dosage: DOSE ADJUSTMENT
     Route: 048
  34. XYREM [Suspect]
     Active Substance: SODIUM OXYBATE
     Dosage: 3 G, BID
     Route: 048
     Dates: start: 201603
  35. ASPIRIN. [Concomitant]
     Active Substance: ASPIRIN
  36. ST. JOHN^S WORT [Concomitant]
     Active Substance: ST. JOHN^S WORT
  37. AMBIEN [Concomitant]
     Active Substance: ZOLPIDEM TARTRATE
  38. DIAZEPAM. [Concomitant]
     Active Substance: DIAZEPAM

REACTIONS (2)
  - Vertigo [Not Recovered/Not Resolved]
  - Nausea [Not Recovered/Not Resolved]
